FAERS Safety Report 24215055 (Version 1)
Quarter: 2024Q3

REPORT INFORMATION
  Report Type: Spontaneous
  Country: US (occurrence: US)
  Receive Date: 20240816
  Receipt Date: 20240816
  Transmission Date: 20241016
  Serious: No
  Sender: AMGEN
  Company Number: US-AMGEN-USASP2024160757

PATIENT

DRUGS (8)
  1. ARANESP [Suspect]
     Active Substance: DARBEPOETIN ALFA
     Indication: Product used for unknown indication
     Dosage: UNK (STRENGTH: 25 MICROGRAM X 23 PFS)
     Route: 065
  2. ARANESP [Suspect]
     Active Substance: DARBEPOETIN ALFA
     Dosage: UNK (STRENGTH: 40 MICROGRAM X 16 PFS)
     Route: 065
  3. ARANESP [Suspect]
     Active Substance: DARBEPOETIN ALFA
     Dosage: UNK (STRENGTH: 60 MICROGRAM X 13 PFS)
     Route: 065
  4. ARANESP [Suspect]
     Active Substance: DARBEPOETIN ALFA
     Dosage: UNK (STRENGTH: 100 MICROGRAM X 13 PFS)
     Route: 065
  5. ARANESP [Suspect]
     Active Substance: DARBEPOETIN ALFA
     Dosage: UNK (STRENGTH: 150 MICROGRAM X 8 PFS)
     Route: 065
  6. ARANESP [Suspect]
     Active Substance: DARBEPOETIN ALFA
     Dosage: UNK (STRENGTH: 200 MICROGRAM X 4 PFS)
     Route: 065
  7. ENBREL [Suspect]
     Active Substance: BENZYL ALCOHOL\ETANERCEPT
     Indication: Product used for unknown indication
     Dosage: UNK (STRENGTH: 50 MILLIGRAM X 12)
     Route: 065
  8. ENBREL [Suspect]
     Active Substance: BENZYL ALCOHOL\ETANERCEPT
     Dosage: UNK (STRENGTH: 25 MILLIGRAM X 4)
     Route: 065

REACTIONS (2)
  - Product storage error [Unknown]
  - Intercepted product administration error [Unknown]
